FAERS Safety Report 14674575 (Version 1)
Quarter: 2018Q1

REPORT INFORMATION
  Report Type: Spontaneous
  Country: CA (occurrence: CA)
  Receive Date: 20180323
  Receipt Date: 20180323
  Transmission Date: 20180509
  Serious: Yes (Disabling)
  Sender: FDA-Public Use
  Company Number: CA-BAYER-2018-051791

PATIENT
  Age: 39 Year
  Sex: Female
  Weight: 79.37 kg

DRUGS (1)
  1. MIRENA [Suspect]
     Active Substance: LEVONORGESTREL
     Dosage: 20 MCG/24HR, CONT
     Route: 015

REACTIONS (12)
  - Depression [Recovering/Resolving]
  - Judgement impaired [Recovering/Resolving]
  - Vertigo [Recovering/Resolving]
  - Visual impairment [Recovering/Resolving]
  - Dysgraphia [Recovering/Resolving]
  - Fatigue [Recovering/Resolving]
  - Suicidal ideation [Recovering/Resolving]
  - Disturbance in attention [Recovering/Resolving]
  - Impaired work ability [Recovering/Resolving]
  - Loss of libido [Recovering/Resolving]
  - Movement disorder [Recovering/Resolving]
  - Tremor [Recovering/Resolving]
